FAERS Safety Report 7282231-9 (Version None)
Quarter: 2011Q1

REPORT INFORMATION
  Report Type: 
  Country: None (occurrence: None)
  Receive Date: 20110125
  Receipt Date: 20101231
  Transmission Date: 20110831
  Serious: Yes (Death)
  Sender: FDA-Public Use
  Company Number: AUR-APL-2011-00064

PATIENT
  Age: 52 Year
  Sex: Male

DRUGS (4)
  1. METOPROLOL [Suspect]
  2. ZOLPIDEM [Suspect]
  3. ACETYLSALICYLIC ACID [Suspect]
  4. PAROXETINE [Suspect]

REACTIONS (3)
  - INTENTIONAL DRUG MISUSE [None]
  - COMPLETED SUICIDE [None]
  - TOXICITY TO VARIOUS AGENTS [None]
